FAERS Safety Report 4373736-9 (Version None)
Quarter: 2004Q2

REPORT INFORMATION
  Report Type: 
  Country: None (occurrence: None)
  Receive Date: 20040607
  Receipt Date: 20040607
  Transmission Date: 20050107
  Serious: No
  Sender: FDA-Public Use
  Company Number: None

PATIENT
  Age: 86 Year
  Sex: Male
  Weight: 45 kg

DRUGS (12)
  1. FRAGMIN [Suspect]
     Indication: THROMBOSIS PROPHYLAXIS
     Dosage: 5000 IU Q12H SUBCUTANEOUS
     Route: 058
     Dates: start: 20040509, end: 20040520
  2. FRAGMIN [Concomitant]
  3. PREVACID [Concomitant]
  4. MEGACE [Concomitant]
  5. TOPROL-XL [Concomitant]
  6. REMERON [Concomitant]
  7. MIRALAX [Concomitant]
  8. SEROQUEL [Concomitant]
  9. SORBITOL [Concomitant]
  10. ZELNORM [Concomitant]
  11. ICAR-C [Concomitant]
  12. M.V.I. [Concomitant]

REACTIONS (1)
  - DEEP VEIN THROMBOSIS [None]
